FAERS Safety Report 6773545-7 (Version None)
Quarter: 2010Q2

REPORT INFORMATION
  Report Type: 
  Country: None (occurrence: None)
  Receive Date: 20100611
  Receipt Date: 20100601
  Transmission Date: 20101027
  Serious: Yes (Other)
  Sender: FDA-Public Use
  Company Number: IPC201006-000153

PATIENT
  Age: 59 Year
  Sex: Male

DRUGS (3)
  1. METOPROLOL TARTRATE [Suspect]
     Indication: ATRIAL FIBRILLATION
     Dosage: BID
  2. LORATADINE [Suspect]
     Indication: EYE PRURITUS
     Dosage: 10 MG, OD, ORAL
     Route: 048
  3. LORATADINE [Suspect]
     Indication: RHINORRHOEA
     Dosage: 10 MG, OD, ORAL
     Route: 048

REACTIONS (4)
  - ATRIAL FIBRILLATION [None]
  - DIZZINESS [None]
  - DYSPNOEA [None]
  - HYPERHIDROSIS [None]
